FAERS Safety Report 5683540-7 (Version None)
Quarter: 2008Q1

REPORT INFORMATION
  Report Type: 
  Country: None (occurrence: None)
  Receive Date: 20080326
  Receipt Date: 20080312
  Transmission Date: 20080703
  Serious: Yes (Death, Life-Threatening, Hospitalization)
  Sender: FDA-Public Use
  Company Number: RENA-12310

PATIENT
  Age: 41 Year
  Sex: Male
  Weight: 48 kg

DRUGS (10)
  1. RENAGEL [Suspect]
     Indication: HYPERPHOSPHATAEMIA
     Dosage: 3 U
     Dates: start: 20040225, end: 20041011
  2. FABRAZYME [Suspect]
     Indication: FABRY'S DISEASE
     Dosage: 50 MG, Q2, INTRAVENOUS
     Route: 042
     Dates: start: 20040716, end: 20041011
  3. CELESTAMINE TAB [Concomitant]
  4. DICLOFENAC SODIUM [Concomitant]
  5. LACTOMIN (LACTOBACILLUS SPOROGENES) [Concomitant]
  6. CARBAMAZEPINE [Concomitant]
  7. CIMETIDINE [Concomitant]
  8. PRECIPITATED CALCIUM CARBONATE (CALCIUM CARBONATE) [Concomitant]
  9. FAMOTIDINE [Concomitant]
  10. AK-SOLITA DP [Concomitant]

REACTIONS (27)
  - ALANINE AMINOTRANSFERASE INCREASED [None]
  - ANOREXIA [None]
  - ASPARTATE AMINOTRANSFERASE INCREASED [None]
  - ASTHENIA [None]
  - BLOOD CREATININE INCREASED [None]
  - BLOOD LACTATE DEHYDROGENASE INCREASED [None]
  - BLOOD UREA INCREASED [None]
  - CACHEXIA [None]
  - CARDIO-RESPIRATORY ARREST [None]
  - CEREBRAL INFARCTION [None]
  - CEREBRAL ISCHAEMIA [None]
  - CEREBROVASCULAR DISORDER [None]
  - DELIRIUM [None]
  - DIZZINESS [None]
  - DYSSTASIA [None]
  - HAEMATOCRIT DECREASED [None]
  - HAEMODIALYSIS [None]
  - HAEMOGLOBIN DECREASED [None]
  - HYPOGLYCAEMIA [None]
  - LOSS OF CONSCIOUSNESS [None]
  - MALAISE [None]
  - PLATELET COUNT DECREASED [None]
  - PSYCHOTIC DISORDER [None]
  - PULMONARY OEDEMA [None]
  - RESPIRATORY DISORDER [None]
  - STRIDOR [None]
  - VASCULAR CALCIFICATION [None]
